FAERS Safety Report 13662543 (Version 1)
Quarter: 2017Q2

REPORT INFORMATION
  Report Type: Spontaneous
  Country: FR (occurrence: FR)
  Receive Date: 20170617
  Receipt Date: 20170617
  Transmission Date: 20170830
  Serious: Yes (Life-Threatening, Other)
  Sender: FDA-Public Use
  Company Number: FR-ELI_LILLY_AND_COMPANY-FR201706005619

PATIENT
  Age: 69 Year
  Sex: Male

DRUGS (2)
  1. GEMCITABINE HYDROCHLORIDE. [Suspect]
     Active Substance: GEMCITABINE HYDROCHLORIDE
     Indication: BLADDER TRANSITIONAL CELL CARCINOMA STAGE I
     Dosage: 1000 MG/M2, CYCLICAL
     Route: 065
  2. CISPLATIN. [Concomitant]
     Active Substance: CISPLATIN
     Indication: BLADDER TRANSITIONAL CELL CARCINOMA STAGE I
     Dosage: 70 MG/M2, CYCLICAL
     Route: 065

REACTIONS (7)
  - Anaemia [Recovered/Resolved]
  - Febrile neutropenia [Recovered/Resolved]
  - Stomatitis [Unknown]
  - Haematotoxicity [Recovered/Resolved]
  - Haemorrhage [Recovered/Resolved]
  - Thrombocytopenia [Recovered/Resolved]
  - Fatigue [Unknown]
